FAERS Safety Report 10532751 (Version 5)
Quarter: 2015Q4

REPORT INFORMATION
  Report Type: Report from Study
  Country: CA (occurrence: CA)
  Receive Date: 20141021
  Receipt Date: 20151224
  Transmission Date: 20160304
  Serious: Yes (Other)
  Sender: FDA-Public Use
  Company Number: CA-ROCHE-1177736

PATIENT
  Age: 55 Year
  Sex: Female
  Weight: 73 kg

DRUGS (14)
  1. NEXIUM [Concomitant]
     Active Substance: ESOMEPRAZOLE MAGNESIUM
  2. ZOPICLONE [Concomitant]
     Active Substance: ZOPICLONE
  3. SULPHASALAZINE [Concomitant]
     Active Substance: SULFASALAZINE
  4. SPIRIVA [Concomitant]
     Active Substance: TIOTROPIUM BROMIDE MONOHYDRATE
  5. TOCILIZUMAB [Suspect]
     Active Substance: TOCILIZUMAB
     Route: 042
     Dates: start: 20121116
  6. DEMEROL [Concomitant]
     Active Substance: MEPERIDINE HYDROCHLORIDE
  7. PAXIL (CANADA) [Concomitant]
  8. VENTOLIN [Concomitant]
     Active Substance: ALBUTEROL SULFATE
  9. CELEBREX [Concomitant]
     Active Substance: CELECOXIB
  10. TOCILIZUMAB [Suspect]
     Active Substance: TOCILIZUMAB
     Indication: RHEUMATOID ARTHRITIS
     Route: 042
     Dates: start: 20120717
  11. ELAVIL [Concomitant]
     Active Substance: AMITRIPTYLINE HYDROCHLORIDE
  12. PREDNISONE. [Concomitant]
     Active Substance: PREDNISONE
  13. DOMPERIDONE [Concomitant]
     Active Substance: DOMPERIDONE
  14. VITAMIN B12 [Concomitant]
     Active Substance: CYANOCOBALAMIN

REACTIONS (9)
  - Carpal tunnel syndrome [Unknown]
  - Weight increased [Not Recovered/Not Resolved]
  - Sinusitis [Recovering/Resolving]
  - Bronchitis [Unknown]
  - Sinusitis [Not Recovered/Not Resolved]
  - Arthropathy [Unknown]
  - Infection [Unknown]
  - Rheumatoid nodule [Unknown]
  - Incision site infection [Unknown]

NARRATIVE: CASE EVENT DATE: 201212
